FAERS Safety Report 16568873 (Version 1)
Quarter: 2019Q3

REPORT INFORMATION
  Report Type: Spontaneous
  Country: DE (occurrence: DE)
  Receive Date: 20190713
  Receipt Date: 20190713
  Transmission Date: 20191004
  Serious: Yes (Hospitalization)
  Sender: FDA-Public Use
  Company Number: DE-TEVA-2019-DE-1076063

PATIENT
  Age: 60 Year
  Sex: Female

DRUGS (5)
  1. URAPIDIL [Suspect]
     Active Substance: URAPIDIL
     Dosage: 30 MG, FRACTIONATED; UNIQUE
  2. PANTOPRAZOLE [Suspect]
     Active Substance: PANTOPRAZOLE
     Dosage: 40 MG, 1-1-1-0
  3. IBUPROFEN. [Suspect]
     Active Substance: IBUPROFEN
     Dosage: 600 MG, 4X1; NOW 2X1 DAILY
  4. METAMIZOL [Concomitant]
     Active Substance: METAMIZOLE SODIUM
     Dosage: NK MG, NK
  5. CEFUROXIM [Suspect]
     Active Substance: CEFUROXIME
     Dosage: NK MG, NK

REACTIONS (6)
  - Nausea [Unknown]
  - Headache [Unknown]
  - Product prescribing error [Unknown]
  - Bradycardia [Unknown]
  - Abdominal pain upper [Unknown]
  - Hypotension [Unknown]
